FAERS Safety Report 6861616-6 (Version None)
Quarter: 2010Q3

REPORT INFORMATION
  Report Type: 
  Country: None (occurrence: None)
  Receive Date: 20100721
  Receipt Date: 20100713
  Transmission Date: 20110219
  Serious: Yes (Hospitalization, Other)
  Sender: FDA-Public Use
  Company Number: US-BIOGENIDEC-2010BI023853

PATIENT
  Sex: Female

DRUGS (2)
  1. AVONEX [Suspect]
     Indication: MULTIPLE SCLEROSIS
     Route: 030
     Dates: start: 20000101, end: 20000301
  2. AVONEX [Suspect]
     Route: 030

REACTIONS (12)
  - ABASIA [None]
  - APHAGIA [None]
  - APHASIA [None]
  - BEDRIDDEN [None]
  - DRUG INEFFECTIVE [None]
  - DYSPHAGIA [None]
  - GAIT DISTURBANCE [None]
  - MALAISE [None]
  - PARALYSIS [None]
  - RESPIRATORY FAILURE [None]
  - SEPSIS [None]
  - URINARY TRACT INFECTION [None]
